FAERS Safety Report 15619132 (Version 1)
Quarter: 2018Q4

REPORT INFORMATION
  Report Type: Spontaneous
  Country: FR (occurrence: FR)
  Receive Date: 20181114
  Receipt Date: 20181114
  Transmission Date: 20190205
  Serious: Yes (Hospitalization, Other)
  Sender: FDA-Public Use
  Company Number: FR-SA-2018SA311027

PATIENT
  Age: 66 Year
  Sex: Female
  Weight: 57 kg

DRUGS (9)
  1. XALATAN [Concomitant]
     Active Substance: LATANOPROST
     Route: 047
  2. EUPANTOL [Concomitant]
     Active Substance: PANTOPRAZOLE SODIUM
     Route: 048
  3. RIFADINE [Suspect]
     Active Substance: RIFAMPIN
     Indication: SEPTIC SHOCK
     Dosage: 1200 MG, QD
     Route: 048
     Dates: start: 20150624, end: 20150717
  4. LEVOTHYROX [Concomitant]
     Active Substance: LEVOTHYROXINE
     Route: 048
  5. KARDEGIC [Concomitant]
     Active Substance: ASPIRIN DL-LYSINE
     Route: 048
  6. BRIMONIDINE [Concomitant]
     Active Substance: BRIMONIDINE TARTRATE
     Route: 047
  7. BRISTOPEN [Concomitant]
     Active Substance: OXACILLIN SODIUM
     Route: 041
  8. COSOPT [Concomitant]
     Active Substance: DORZOLAMIDE HYDROCHLORIDE\TIMOLOL MALEATE
     Route: 047
  9. HEPARINE SODIQUE [Concomitant]
     Active Substance: HEPARIN SODIUM
     Route: 058

REACTIONS (3)
  - Cholestasis [Recovered/Resolved]
  - Acute hepatic failure [Recovered/Resolved]
  - Hepatocellular injury [Recovered/Resolved]

NARRATIVE: CASE EVENT DATE: 20150714
